FAERS Safety Report 5275977-5 (Version None)
Quarter: 2007Q1

REPORT INFORMATION
  Report Type: 
  Country: None (occurrence: None)
  Receive Date: 20070326
  Receipt Date: 20070320
  Transmission Date: 20070707
  Serious: Yes (Death, Hospitalization)
  Sender: FDA-Public Use
  Company Number: SE-ROCHE-481050

PATIENT
  Age: 59 Year
  Sex: Male

DRUGS (15)
  1. CYMEVENE [Suspect]
     Dosage: DOSE FREQUENCY REPORTED AS X2
     Route: 042
     Dates: start: 20000211, end: 20000215
  2. ABBODOP [Concomitant]
  3. CELLCEPT [Concomitant]
     Dates: start: 20000115
  4. SANDIMMUNE [Concomitant]
     Dates: start: 20000115
  5. DALTEPARIN SODIUM [Concomitant]
  6. FUROSEMIDE [Concomitant]
  7. FUNGILIN [Concomitant]
     Dates: start: 20000115
  8. FLAGYL [Concomitant]
     Dates: start: 20000115
  9. MEROPENEMUM [Concomitant]
  10. MYCOSTATIN [Concomitant]
     Dates: start: 20000115
  11. OMEPRAZOLE [Concomitant]
  12. URSO FALK [Concomitant]
  13. WARAN [Concomitant]
  14. ZOPICLONE [Concomitant]
  15. CIPROFLOXACIN HYDROCHLORIDE [Concomitant]
     Dates: start: 20000115

REACTIONS (12)
  - ANAEMIA [None]
  - ANURIA [None]
  - CARDIOVASCULAR INSUFFICIENCY [None]
  - CONFUSIONAL STATE [None]
  - DEHYDRATION [None]
  - HAEMATEMESIS [None]
  - HEPATIC FAILURE [None]
  - HYPOTONIA [None]
  - MULTI-ORGAN FAILURE [None]
  - PLATELET DISORDER [None]
  - POLYURIA [None]
  - RENAL FAILURE [None]
